FAERS Safety Report 8867963 (Version 1)
Quarter: 2012Q4

REPORT INFORMATION
  Report Type: 
  Country: US (occurrence: US)
  Receive Date: 20121026
  Receipt Date: 20121026
  Transmission Date: 20130627
  Serious: No
  Sender: FDA-Public Use
  Company Number: US-AMGEN-USASP2012041394

PATIENT
  Age: 54 Year
  Sex: Female

DRUGS (2)
  1. ENBREL [Suspect]
     Indication: RHEUMATOID ARTHRITIS
     Dosage: 40 mg, qwk
     Route: 058
     Dates: start: 20100630
  2. HUMIRA [Concomitant]
     Dosage: UNK

REACTIONS (2)
  - Drug effect decreased [Unknown]
  - Injection site pain [Unknown]
